FAERS Safety Report 5581620-8 (Version None)
Quarter: 2008Q1

REPORT INFORMATION
  Report Type: 
  Country: None (occurrence: None)
  Receive Date: 20080102
  Receipt Date: 20080102
  Transmission Date: 20080703
  Serious: Yes (Hospitalization)
  Sender: FDA-Public Use
  Company Number: None

PATIENT
  Age: 70 Year
  Sex: Male

DRUGS (2)
  1. ASPIRIN [Suspect]
     Indication: CARDIOVASCULAR EVENT PROPHYLAXIS
     Dosage: 81MG PO
     Route: 048
     Dates: start: 20021204, end: 20071113
  2. CLOPIDOGREL [Suspect]
     Indication: CAROTID ARTERY STENOSIS
     Dosage: 75MG EVERY DAY PO
     Route: 048
     Dates: start: 20021204, end: 20071018

REACTIONS (1)
  - GASTROINTESTINAL HAEMORRHAGE [None]
